FAERS Safety Report 8402129-X (Version None)
Quarter: 2012Q2

REPORT INFORMATION
  Report Type: 
  Country: None (occurrence: None)
  Receive Date: 20120529
  Receipt Date: 20120515
  Transmission Date: 20120825
  Serious: Yes (Hospitalization, Other)
  Sender: FDA-Public Use
  Company Number: 2011SP050227

PATIENT
  Age: 65 Year
  Sex: Male
  Weight: 106.2 kg

DRUGS (8)
  1. ENOXAPARIN SODIUM [Concomitant]
  2. SIMVASTATIN [Concomitant]
  3. VALPROATE SODIUM [Concomitant]
  4. TEMOZOLOMIDE [Suspect]
     Indication: GLIOBLASTOMA
     Dosage: 400 MG;;PO
     Route: 048
     Dates: start: 20110830, end: 20110903
  5. TEMOZOLOMIDE [Suspect]
     Indication: GLIOBLASTOMA
     Dosage: 400 MG;;PO
     Route: 048
     Dates: start: 20100824
  6. BEVACIZUMAB (BEVACIZUMAB) [Suspect]
     Indication: GLIOBLASTOMA
     Dosage: ;IV
     Route: 042
     Dates: start: 20100824
  7. LOSARTAN POTASSIUM [Concomitant]
  8. PIPERACILLIN AND TAZOBACTAM [Concomitant]

REACTIONS (5)
  - INFECTION [None]
  - HAEMOGLOBIN DECREASED [None]
  - WHITE BLOOD CELL COUNT DECREASED [None]
  - NEUTROPHIL COUNT DECREASED [None]
  - LUNG NEOPLASM MALIGNANT [None]
